FAERS Safety Report 4466378-8 (Version None)
Quarter: 2004Q3

REPORT INFORMATION
  Report Type: 
  Country: None (occurrence: None)
  Receive Date: 20040930
  Receipt Date: 20040917
  Transmission Date: 20050211
  Serious: Yes (Hospitalization)
  Sender: FDA-Public Use
  Company Number: HQWYE123320SEP04

PATIENT
  Age: 46 Year
  Sex: Female

DRUGS (2)
  1. RAPAMUNE [Suspect]
     Indication: IMMUNOSUPPRESSANT DRUG THERAPY
     Dosage: 1 MG 1X PER 1 DAY, ORAL
     Route: 048
  2. PREDNISONE [Concomitant]

REACTIONS (2)
  - INFECTION [None]
  - RENAL FAILURE [None]
